FAERS Safety Report 24683441 (Version 1)
Quarter: 2024Q4

REPORT INFORMATION
  Report Type: Spontaneous
  Country: US (occurrence: US)
  Receive Date: 20241201
  Receipt Date: 20241201
  Transmission Date: 20250115
  Serious: No
  Sender: NOVARTIS
  Company Number: US-002147023-NVSC2024US093020

PATIENT
  Age: 70 Year
  Sex: Female
  Weight: 57 kg

DRUGS (3)
  1. FABHALTA [Suspect]
     Active Substance: IPTACOPAN HYDROCHLORIDE
     Indication: Paroxysmal nocturnal haemoglobinuria
     Dosage: 200 MG
     Route: 048
     Dates: start: 20240501
  2. INFLUENZA VIRUS VACCINE [Concomitant]
     Active Substance: INFLUENZA VIRUS VACCINE
     Indication: Product used for unknown indication
     Dosage: UNK
     Route: 065
  3. UNSPECIFIED INGREDIENT [Concomitant]
     Active Substance: UNSPECIFIED INGREDIENT
     Indication: Product used for unknown indication
     Dosage: UNK
     Route: 065

REACTIONS (9)
  - Dizziness [Not Recovered/Not Resolved]
  - Oropharyngeal pain [Not Recovered/Not Resolved]
  - Hypertension [Not Recovered/Not Resolved]
  - Blood cholesterol increased [Not Recovered/Not Resolved]
  - Serum ferritin increased [Not Recovered/Not Resolved]
  - Platelet count decreased [Not Recovered/Not Resolved]
  - Haemoglobin increased [Not Recovered/Not Resolved]
  - Pain [Unknown]
  - Bone pain [Unknown]

NARRATIVE: CASE EVENT DATE: 20240501
